FAERS Safety Report 9786563 (Version 2)
Quarter: 2014Q1

REPORT INFORMATION
  Report Type: Spontaneous
  Country: BE (occurrence: BE)
  Receive Date: 20131227
  Receipt Date: 20140324
  Transmission Date: 20141002
  Serious: Yes (Other)
  Sender: FDA-Public Use
  Company Number: BE-PFIZER INC-2013366813

PATIENT
  Age: 40 Year
  Sex: Male

DRUGS (2)
  1. SULFASALAZINE [Suspect]
     Indication: INFLAMMATORY BOWEL DISEASE
     Dosage: 500 MG, 2X/DAY
  2. SULFASALAZINE [Suspect]
     Dosage: 1000 MG, 2X/DAY

REACTIONS (1)
  - Alveolitis allergic [Recovered/Resolved]
